FAERS Safety Report 9678996 (Version 1)
Quarter: 2013Q4

REPORT INFORMATION
  Report Type: Spontaneous
  Country: US (occurrence: None)
  Receive Date: 20131107
  Receipt Date: 20131107
  Transmission Date: 20140711
  Serious: Yes (Hospitalization)
  Sender: FDA-Public Use
  Company Number: 13AE025

PATIENT
  Sex: Female

DRUGS (1)
  1. EQUATE ACETAMINOPHEN 500 MG RAPID RELEASE GELCAPS [Suspect]
     Indication: ABDOMINAL PAIN UPPER
     Dosage: 2 BY MOUTH
     Route: 048
     Dates: start: 20131030

REACTIONS (1)
  - Appendicitis [None]
